FAERS Safety Report 6576989-1 (Version None)
Quarter: 2010Q1

REPORT INFORMATION
  Report Type: 
  Country: None (occurrence: None)
  Receive Date: 20100210
  Receipt Date: 20100205
  Transmission Date: 20100710
  Serious: Yes (Death)
  Sender: FDA-Public Use
  Company Number: US-GILEAD-2010-0026906

PATIENT
  Sex: Female

DRUGS (11)
  1. LETAIRIS [Suspect]
     Indication: PULMONARY ARTERIAL HYPERTENSION
     Route: 048
     Dates: start: 20090811
  2. LASIX [Concomitant]
  3. CARDIZEM [Concomitant]
  4. DUONEB [Concomitant]
  5. REGLAN [Concomitant]
  6. GLUCOSAMINE [Concomitant]
  7. LOVAZA [Concomitant]
  8. POTASSIUM [Concomitant]
  9. NEXIUM [Concomitant]
  10. PREDNISONE [Concomitant]
  11. PLAQUENIL [Concomitant]

REACTIONS (2)
  - RENAL FAILURE [None]
  - SCLERODERMA [None]
